FAERS Safety Report 7416599-7 (Version None)
Quarter: 2011Q2

REPORT INFORMATION
  Report Type: 
  Country: None (occurrence: None)
  Receive Date: 20110415
  Receipt Date: 20110405
  Transmission Date: 20111010
  Serious: Yes (Hospitalization)
  Sender: FDA-Public Use
  Company Number: US-BIOGENIDEC-2007BI024535

PATIENT
  Age: 44 Year
  Sex: Female
  Weight: 63 kg

DRUGS (4)
  1. AVONEX [Suspect]
     Route: 030
     Dates: start: 19960101, end: 20030101
  2. AVONEX [Suspect]
     Route: 030
  3. AVONEX [Suspect]
     Indication: MULTIPLE SCLEROSIS
     Route: 030
     Dates: start: 20100726, end: 20101201
  4. AVONEX [Suspect]
     Route: 030
     Dates: start: 20030101, end: 20030101

REACTIONS (16)
  - CELLULITIS [None]
  - URINARY TRACT INFECTION [None]
  - SYNCOPE [None]
  - THYROID CANCER [None]
  - FATIGUE [None]
  - VULVOVAGINAL MYCOTIC INFECTION [None]
  - FALL [None]
  - MUSCLE SPASMS [None]
  - MULTIPLE SCLEROSIS RELAPSE [None]
  - INFLUENZA LIKE ILLNESS [None]
  - BLOOD POTASSIUM DECREASED [None]
  - GENERAL SYMPTOM [None]
  - BLOOD IRON DECREASED [None]
  - DIARRHOEA [None]
  - HEADACHE [None]
  - OPTIC NEURITIS [None]
